FAERS Safety Report 7657137-3 (Version None)
Quarter: 2011Q3

REPORT INFORMATION
  Report Type: 
  Country: None (occurrence: None)
  Receive Date: 20110804
  Receipt Date: 20110422
  Transmission Date: 20111222
  Serious: No
  Sender: FDA-Public Use
  Company Number: US-GLAXOSMITHKLINE-A0924215A

PATIENT
  Age: 60 Year
  Sex: Female

DRUGS (10)
  1. SIMVASTATIN [Concomitant]
  2. CARBIDOPA AND LEVODOPA [Concomitant]
  3. OMEPRAZOLE [Concomitant]
  4. ROPINIROLE [Concomitant]
  5. LORAZEPAM [Concomitant]
  6. ATENOLOL [Concomitant]
  7. ADVAIR DISKUS 100/50 [Suspect]
     Indication: SARCOIDOSIS
     Dosage: 2PUFF TWICE PER DAY
     Route: 055
     Dates: start: 20110101
  8. GABAPENTIN [Concomitant]
  9. ADVAIR DISKUS 100/50 [Suspect]
     Dosage: 1PUFF TWICE PER DAY
     Route: 055
     Dates: start: 20100101
  10. EFFEXOR XR [Concomitant]

REACTIONS (3)
  - DYSPHONIA [None]
  - OROPHARYNGEAL BLISTERING [None]
  - COUGH [None]
